FAERS Safety Report 22703495 (Version 3)
Quarter: 2025Q1

REPORT INFORMATION
  Report Type: Report from Study
  Country: BR (occurrence: BR)
  Receive Date: 20230713
  Receipt Date: 20250121
  Transmission Date: 20250409
  Serious: Yes (Other)
  Sender: CELLTRION
  Company Number: BR-CELLTRION INC.-2023BR013922

PATIENT

DRUGS (2)
  1. INFLIXIMAB-DYYB [Suspect]
     Active Substance: INFLIXIMAB-DYYB
     Indication: Colitis ulcerative
     Dosage: 6 AMPOULES EVERY 4 WEEKS
     Route: 042
     Dates: start: 20230117
  2. URSODIOL [Concomitant]
     Active Substance: URSODIOL
     Indication: Cholangitis
     Route: 048

REACTIONS (5)
  - Colitis ulcerative [Unknown]
  - Influenza [Recovering/Resolving]
  - Intentional dose omission [Unknown]
  - Maternal exposure during breast feeding [Unknown]
  - Intentional product use issue [Unknown]

NARRATIVE: CASE EVENT DATE: 20230605
